FAERS Safety Report 4303321-6 (Version None)
Quarter: 2004Q1

REPORT INFORMATION
  Report Type: 
  Country: None (occurrence: None)
  Receive Date: 20040223
  Receipt Date: 20040213
  Transmission Date: 20041129
  Serious: Yes (Hospitalization)
  Sender: FDA-Public Use
  Company Number: JP-JNJFOC-20040203339

PATIENT
  Age: 72 Year
  Sex: Male

DRUGS (3)
  1. LEVOFLOXACIN [Suspect]
     Indication: INFLUENZA
     Dosage: 200 MG, 2 IN 1 DAY, ORAL
     Route: 048
     Dates: start: 20040204, end: 20040204
  2. TAMIFLU [Suspect]
     Indication: INFLUENZA
     Dosage: 75 MG, ORAL
     Route: 048
     Dates: start: 20040204, end: 20040204
  3. PARACETAMOL (PARACETAMOL) [Concomitant]

REACTIONS (7)
  - ALANINE AMINOTRANSFERASE INCREASED [None]
  - BLOOD CREATINE PHOSPHOKINASE INCREASED [None]
  - BLOOD LACTATE DEHYDROGENASE INCREASED [None]
  - DYSSTASIA [None]
  - INFLUENZA [None]
  - MUSCULAR WEAKNESS [None]
  - PAIN IN EXTREMITY [None]
